FAERS Safety Report 9491682 (Version 1)
Quarter: 2013Q1

REPORT INFORMATION
  Report Type: Not Available
  Country: US (occurrence: US)
  Receive Date: 20121219
  Receipt Date: 20121219
  Transmission Date: 20140127
  Serious: Yes (Other)
  Sender: FDA-Public Use
  Company Number: US-LUNDBECK-DKLU1085389

PATIENT
  Sex: Female

DRUGS (4)
  1. ONFI [Suspect]
     Indication: GRAND MAL CONVULSION
  2. ONFI [Suspect]
     Route: 048
  3. ONFI [Suspect]
  4. ONFI [Suspect]

REACTIONS (4)
  - Convulsion [Not Recovered/Not Resolved]
  - Abdominal distension [Not Recovered/Not Resolved]
  - Weight increased [Not Recovered/Not Resolved]
  - Emotional disorder [Not Recovered/Not Resolved]
